FAERS Safety Report 6155430-7 (Version None)
Quarter: 2009Q2

REPORT INFORMATION
  Report Type: 
  Country: None (occurrence: None)
  Receive Date: 20090413
  Receipt Date: 20090402
  Transmission Date: 20091009
  Serious: Yes (Hospitalization)
  Sender: FDA-Public Use
  Company Number: 2009AL001706

PATIENT
  Age: 56 Year
  Sex: Male

DRUGS (9)
  1. DIGOXIN [Suspect]
     Dosage: PO
     Route: 048
  2. EFFEXOR [Concomitant]
  3. CARDIZEM [Concomitant]
  4. ASPIRIN [Concomitant]
  5. ZOCOR [Concomitant]
  6. PERI-COLACE [Concomitant]
  7. PEPCID [Concomitant]
  8. PERCOCT [Concomitant]
  9. CELEBREX [Concomitant]

REACTIONS (4)
  - ANGINA UNSTABLE [None]
  - ECONOMIC PROBLEM [None]
  - EMOTIONAL DISORDER [None]
  - PAIN [None]
